FAERS Safety Report 11565789 (Version 1)
Quarter: 2015Q3

REPORT INFORMATION
  Report Type: Spontaneous
  Country: US (occurrence: US)
  Receive Date: 20150916
  Receipt Date: 20150916
  Transmission Date: 20151125
  Serious: No
  Sender: FDA-Public Use
  Company Number: US-ELI_LILLY_AND_COMPANY-US200905002288

PATIENT
  Age: 59 Year
  Sex: Female

DRUGS (5)
  1. FORTEO [Suspect]
     Active Substance: TERIPARATIDE
     Dosage: UNK, UNK
     Dates: start: 200706, end: 20090328
  2. FORTEO [Suspect]
     Active Substance: TERIPARATIDE
     Dates: start: 20090402
  3. HERBAL NOS [Concomitant]
     Active Substance: HERBALS
     Indication: ALOPECIA
  4. ASA [Concomitant]
     Active Substance: ASPIRIN
  5. CEFALEXIN [Concomitant]
     Active Substance: CEPHALEXIN

REACTIONS (3)
  - Bronchitis [Unknown]
  - Alopecia [Not Recovered/Not Resolved]
  - Pyrexia [Unknown]

NARRATIVE: CASE EVENT DATE: 200903
